FAERS Safety Report 18199461 (Version 1)
Quarter: 2020Q3

REPORT INFORMATION
  Report Type: Other
  Country: CA (occurrence: CA)
  Receive Date: 20200826
  Receipt Date: 20200826
  Transmission Date: 20201103
  Serious: Yes (Hospitalization)
  Sender: FDA-Public Use
  Company Number: CA-COVIS PHARMA B.V.-2020COV00400

PATIENT
  Age: 83 Year
  Sex: Male
  Weight: 100 kg

DRUGS (29)
  1. FOLIC ACID. [Suspect]
     Active Substance: FOLIC ACID
     Dosage: 5 MG, 1X/DAY
     Route: 048
  2. IPRATROPIUM BROMIDE. [Suspect]
     Active Substance: IPRATROPIUM BROMIDE
     Dosage: 2 DF
  3. SALBUTAMOL [Suspect]
     Active Substance: ALBUTEROL
     Dosage: 2 DF
     Route: 055
  4. ZENHALE [Suspect]
     Active Substance: FORMOTEROL FUMARATE\MOMETASONE FUROATE
     Dosage: 2 DF, 1X/DAY
     Route: 055
  5. PREDNISONE. [Concomitant]
     Active Substance: PREDNISONE
     Indication: PRODUCT USED FOR UNKNOWN INDICATION
     Dosage: 10 MG
  6. PREDNISONE. [Concomitant]
     Active Substance: PREDNISONE
     Indication: PRODUCT USED FOR UNKNOWN INDICATION
     Dosage: 15 MG
  7. OMNARIS [Suspect]
     Active Substance: CICLESONIDE
     Dosage: 2 DF, 1X/DAY
     Route: 055
  8. METHOTREXATE. [Suspect]
     Active Substance: METHOTREXATE
     Dosage: 25 MG, 1X/WEEK
     Route: 048
  9. PREDNISONE. [Concomitant]
     Active Substance: PREDNISONE
     Indication: PRODUCT USED FOR UNKNOWN INDICATION
     Dosage: 20 MG
  10. PREDNISONE. [Concomitant]
     Active Substance: PREDNISONE
     Indication: PRODUCT USED FOR UNKNOWN INDICATION
     Dosage: 5 MG
  11. PREDNISONE. [Concomitant]
     Active Substance: PREDNISONE
     Indication: ASTHMA
     Dosage: 15 MG
  12. EZETROL [Suspect]
     Active Substance: EZETIMIBE
     Dosage: 1 DF, 1X/DAY
     Route: 065
  13. PREDNISONE. [Concomitant]
     Active Substance: PREDNISONE
     Indication: ASTHMA
     Dosage: 30 MG
  14. TIOTROPIUM [Suspect]
     Active Substance: TIOTROPIUM
     Dosage: 2 DF, 1X/DAY
     Route: 055
  15. UMECLIDINIUM BROMIDE [Suspect]
     Active Substance: UMECLIDINIUM BROMIDE
     Dosage: 1 DF, 1X/DAY
     Route: 055
  16. LANTUS [Concomitant]
     Active Substance: INSULIN GLARGINE
     Indication: TYPE 2 DIABETES MELLITUS
     Dosage: 2 DF, 1X/DAY
  17. PREDNISONE. [Concomitant]
     Active Substance: PREDNISONE
     Indication: ASTHMA
     Dosage: 10 MG
  18. HUMALOG [Suspect]
     Active Substance: INSULIN LISPRO
     Dosage: 2 DF, 1X/DAY
     Route: 065
  19. PRAVASTATIN. [Suspect]
     Active Substance: PRAVASTATIN
     Dosage: 10 MG, 1X/DAY
     Route: 048
  20. SINGULAIR [Suspect]
     Active Substance: MONTELUKAST SODIUM
     Dosage: 10 MG, 1X/DAY
  21. APIXABAN [Concomitant]
     Active Substance: APIXABAN
     Indication: ATRIAL FIBRILLATION
     Dosage: 5 MG, 2X/DAY
  22. PREDNISONE. [Concomitant]
     Active Substance: PREDNISONE
     Indication: ASTHMA
     Dosage: 20 MG
  23. PREDNISONE. [Concomitant]
     Active Substance: PREDNISONE
     Indication: PRODUCT USED FOR UNKNOWN INDICATION
     Dosage: 30 MG
  24. DILTIAZEM CD [Suspect]
     Active Substance: DILTIAZEM
     Dosage: 120 MG, 1X/DAY
     Route: 048
  25. INSULIN LISPRO [Concomitant]
     Active Substance: INSULIN LISPRO
     Indication: TYPE 2 DIABETES MELLITUS
     Dosage: 2 DF, 1X/DAY
  26. MONTELUKAST [Suspect]
     Active Substance: MONTELUKAST SODIUM
     Dosage: 10 MG, 1X/DAY
     Route: 048
  27. OMALIZUMAB. [Suspect]
     Active Substance: OMALIZUMAB
     Dosage: 150 MG
     Route: 058
  28. PREDNISONE. [Concomitant]
     Active Substance: PREDNISONE
     Indication: ASTHMA
     Dosage: 5 MG
  29. EZETIMIBE. [Suspect]
     Active Substance: EZETIMIBE
     Dosage: 10 MG, 1X/DAY
     Route: 048

REACTIONS (14)
  - Asthma [Unknown]
  - Weight increased [Unknown]
  - Discomfort [Unknown]
  - Oropharyngeal pain [Unknown]
  - Chest discomfort [Unknown]
  - Obstructive airways disorder [Unknown]
  - Dyspnoea [Unknown]
  - Diaphragmatic disorder [Unknown]
  - Left ventricular hypertrophy [Unknown]
  - Oedema peripheral [Unknown]
  - Pyrexia [Unknown]
  - Therapeutic product effect incomplete [Unknown]
  - Blood count abnormal [Unknown]
  - Hypoxia [Unknown]
